FAERS Safety Report 11518428 (Version 1)
Quarter: 2015Q3

REPORT INFORMATION
  Report Type: Spontaneous
  Country: US (occurrence: None)
  Receive Date: 20150917
  Receipt Date: 20150917
  Transmission Date: 20151125
  Serious: No
  Sender: FDA-Public Use
  Company Number: ADR-2015-00535

PATIENT
  Age: 60 Year
  Sex: Male

DRUGS (1)
  1. LIORESAL [Suspect]
     Active Substance: BACLOFEN
     Indication: MUSCLE SPASTICITY
     Dosage: 210.1 MCG/DAY

REACTIONS (4)
  - No therapeutic response [None]
  - Pruritus [None]
  - Medical device site rash [None]
  - Medical device site erythema [None]
